FAERS Safety Report 12707071 (Version 2)
Quarter: 2016Q4

REPORT INFORMATION
  Report Type: Report from Study
  Country: NL (occurrence: NL)
  Receive Date: 20160901
  Receipt Date: 20161027
  Transmission Date: 20170207
  Serious: Yes (Death, Hospitalization, Other)
  Sender: FDA-Public Use
  Company Number: NL-AMGEN-NLDSL2016114473

PATIENT
  Age: 89 Year
  Sex: Female

DRUGS (1)
  1. ARANESP [Suspect]
     Active Substance: DARBEPOETIN ALFA
     Indication: CHRONIC KIDNEY DISEASE
     Dosage: 60 MUG (200 MCG/ML, 0.3 ML), Q2WK
     Route: 058

REACTIONS (3)
  - Hospitalisation [Unknown]
  - Death [Fatal]
  - Gallbladder operation [Unknown]

NARRATIVE: CASE EVENT DATE: 20160808
